FAERS Safety Report 22612184 (Version 1)
Quarter: 2023Q2

REPORT INFORMATION
  Report Type: Spontaneous
  Country: NL (occurrence: NL)
  Receive Date: 20230617
  Receipt Date: 20230617
  Transmission Date: 20230721
  Serious: Yes (Other)
  Sender: FDA-Public Use
  Company Number: None

PATIENT
  Sex: Male
  Weight: 80 kg

DRUGS (5)
  1. QUETIAPINE [Suspect]
     Active Substance: QUETIAPINE
     Indication: Restlessness
     Dosage: 25 MG, QD (1X 25MG)
     Route: 065
     Dates: start: 20220330
  2. QUETIAPINE [Suspect]
     Active Substance: QUETIAPINE
     Dosage: 100 MG, Q12H (2X PER DAG 100 MG 08.00 + 17.00 +1X 25 MG. 17.00)
     Route: 065
     Dates: start: 20220330
  3. LORAZEPAM [Suspect]
     Active Substance: LORAZEPAM
     Indication: Restlessness
     Dosage: 1 MG
     Route: 065
     Dates: start: 20201215
  4. CITALOPRAM [Suspect]
     Active Substance: CITALOPRAM HYDROBROMIDE
     Indication: Restlessness
     Dosage: UNK (1X PER DAY AT 08:00)
     Route: 065
     Dates: start: 20211110
  5. MIDAZOLAM [Suspect]
     Active Substance: MIDAZOLAM
     Indication: Sleep disorder
     Dosage: UNK (EVERY EVENING BEFORE SLEEPING MAX 2 X PER NIGHT)
     Route: 065
     Dates: start: 20220303

REACTIONS (2)
  - Fall [Not Recovered/Not Resolved]
  - Vomiting [Not Recovered/Not Resolved]
